FAERS Safety Report 25299587 (Version 1)
Quarter: 2025Q2

REPORT INFORMATION
  Report Type: Spontaneous
  Country: US (occurrence: US)
  Receive Date: 20250512
  Receipt Date: 20250512
  Transmission Date: 20250716
  Serious: No
  Sender: ROCHE
  Company Number: US-MLMSERVICE-20230626-4370250-1

PATIENT
  Age: 53 Year
  Sex: Female

DRUGS (8)
  1. MYCOPHENOLATE MOFETIL [Suspect]
     Active Substance: MYCOPHENOLATE MOFETIL
     Indication: Pancreatitis acute
     Route: 065
  2. NIVOLUMAB [Concomitant]
     Active Substance: NIVOLUMAB
     Indication: Fibrosarcoma metastatic
  3. IPILIMUMAB [Concomitant]
     Active Substance: IPILIMUMAB
     Indication: Fibrosarcoma metastatic
  4. PREDNISONE [Concomitant]
     Active Substance: PREDNISONE
     Indication: Pancreatitis acute
  5. PREDNISONE [Concomitant]
     Active Substance: PREDNISONE
  6. PREDNISONE [Concomitant]
     Active Substance: PREDNISONE
  7. MYCOPHENOLATE SODIUM [Concomitant]
     Active Substance: MYCOPHENOLATE SODIUM
     Indication: Pancreatitis acute
  8. AZATHIOPRINE [Concomitant]
     Active Substance: AZATHIOPRINE
     Indication: Pancreatitis acute

REACTIONS (2)
  - Oedema peripheral [Unknown]
  - Off label use [Unknown]
